FAERS Safety Report 6297487-9 (Version None)
Quarter: 2009Q3

REPORT INFORMATION
  Report Type: 
  Country: None (occurrence: None)
  Receive Date: 20090805
  Receipt Date: 20090730
  Transmission Date: 20100115
  Serious: Yes (Hospitalization)
  Sender: FDA-Public Use
  Company Number: GB-AMGEN-US102435

PATIENT
  Sex: Female

DRUGS (4)
  1. ENBREL [Suspect]
     Indication: RHEUMATOID ARTHRITIS
     Route: 058
     Dates: start: 20041001, end: 20050201
  2. VITAMIN B12 [Concomitant]
  3. ETORICOXIB [Concomitant]
     Indication: RHEUMATOID ARTHRITIS
     Dosage: 60MG FREQUENCY UNSPECIFIED
     Route: 048
     Dates: start: 20030201
  4. THYROXINE I 125 [Concomitant]
     Indication: HYPOTHYROIDISM
     Route: 048

REACTIONS (2)
  - OVARIAN CANCER [None]
  - RETINAL VEIN OCCLUSION [None]
